FAERS Safety Report 18125846 (Version 2)
Quarter: 2020Q3

REPORT INFORMATION
  Report Type: Spontaneous
  Country: US (occurrence: US)
  Receive Date: 20200807
  Receipt Date: 20200825
  Transmission Date: 20201103
  Serious: Yes (Hospitalization)
  Sender: FDA-Public Use
  Company Number: US-GILEAD-2020-0488967

PATIENT
  Age: 37 Year
  Sex: Male
  Weight: 84 kg

DRUGS (7)
  1. DEXAMETHASONE. [Concomitant]
     Active Substance: DEXAMETHASONE
  2. ACETAMINOPHEN. [Concomitant]
     Active Substance: ACETAMINOPHEN
     Indication: PYREXIA
  3. BENZONATATE. [Concomitant]
     Active Substance: BENZONATATE
     Indication: COUGH
  4. REMDESIVIR. [Suspect]
     Active Substance: REMDESIVIR
     Indication: COVID-19
     Dosage: 100 MG, QD
     Route: 041
     Dates: start: 20200731, end: 20200802
  5. ENOXAPARIN [Concomitant]
     Active Substance: ENOXAPARIN
     Indication: PROPHYLAXIS
  6. IVERMECTIN. [Concomitant]
     Active Substance: IVERMECTIN
     Indication: STRONGYLOIDIASIS
     Dosage: UNK
     Dates: start: 20200731, end: 20200801
  7. GUAIFENESIN. [Concomitant]
     Active Substance: GUAIFENESIN
     Indication: COUGH

REACTIONS (1)
  - Alanine aminotransferase increased [Unknown]

NARRATIVE: CASE EVENT DATE: 20200803
